FAERS Safety Report 10008919 (Version 1)
Quarter: 2014Q1

REPORT INFORMATION
  Report Type: Spontaneous
  Country: US (occurrence: US)
  Receive Date: 20140313
  Receipt Date: 20140313
  Transmission Date: 20141002
  Serious: No
  Sender: FDA-Public Use
  Company Number: US-INCYTE CORPORATION-2012IN000969

PATIENT
  Age: 62 Year
  Sex: Male

DRUGS (8)
  1. JAKAFI [Suspect]
     Indication: MYELOFIBROSIS
     Dosage: 15 MG, BID
     Route: 048
     Dates: start: 201205
  2. LOVENOX [Concomitant]
  3. METFORMIN [Concomitant]
  4. GLIPIZIDE [Concomitant]
  5. CARVEDILOL [Concomitant]
  6. ALLOPURINOL BIOGARAN [Concomitant]
  7. SYNTHROID [Concomitant]
  8. CITALOPRAM [Concomitant]

REACTIONS (1)
  - Nephrolithiasis [Unknown]
